FAERS Safety Report 5267292-0 (Version None)
Quarter: 2007Q1

REPORT INFORMATION
  Report Type: 
  Country: None (occurrence: None)
  Receive Date: 20070316
  Receipt Date: 20070305
  Transmission Date: 20070707
  Serious: Yes (Hospitalization, Other)
  Sender: FDA-Public Use
  Company Number: FR-GLAXOSMITHKLINE-B0457967A

PATIENT
  Age: 21 Year
  Sex: Female
  Weight: 78 kg

DRUGS (5)
  1. ZYBAN [Suspect]
     Route: 048
     Dates: start: 20070127, end: 20070202
  2. PAROXETINE HCL [Suspect]
     Route: 048
     Dates: start: 20070202, end: 20070202
  3. TERCIAN [Suspect]
     Route: 048
     Dates: start: 20060701
  4. KETOPROFEN [Suspect]
     Dosage: 10TAB SINGLE DOSE
     Route: 048
     Dates: start: 20070202, end: 20070202
  5. EPITOMAX [Concomitant]
     Indication: MIGRAINE
     Route: 048
     Dates: start: 20060401

REACTIONS (5)
  - CARDIAC ARREST [None]
  - CONFUSIONAL STATE [None]
  - ECCHYMOSIS [None]
  - INTENTIONAL OVERDOSE [None]
  - SUICIDE ATTEMPT [None]
